FAERS Safety Report 4644493-3 (Version None)
Quarter: 2005Q2

REPORT INFORMATION
  Report Type: 
  Country: None (occurrence: None)
  Receive Date: 20050425
  Receipt Date: 20050425
  Transmission Date: 20051028
  Serious: No
  Sender: FDA-Public Use
  Company Number: None

PATIENT
  Sex: Male
  Weight: 79.1 kg

DRUGS (2)
  1. DOCETAXEL [Suspect]
     Indication: HEPATIC NEOPLASM MALIGNANT
     Dosage: 30MG/M2  (58 MG IV WEEKLY)
     Route: 042
     Dates: start: 20050202
  2. DOCECALCIFEROL [Concomitant]

REACTIONS (7)
  - ANOREXIA [None]
  - DEHYDRATION [None]
  - DRUG TOXICITY [None]
  - DYSGEUSIA [None]
  - DYSPNOEA [None]
  - FATIGUE [None]
  - MALIGNANT NEOPLASM PROGRESSION [None]
